FAERS Safety Report 19145656 (Version 2)
Quarter: 2021Q2

REPORT INFORMATION
  Report Type: Spontaneous
  Country: US (occurrence: US)
  Receive Date: 20210416
  Receipt Date: 20210602
  Transmission Date: 20210717
  Serious: Yes (Hospitalization, Other)
  Sender: FDA-Public Use
  Company Number: US-HIKMA PHARMACEUTICALS USA INC.-US-H14001-21-01891

PATIENT
  Age: 2 Year
  Sex: Female

DRUGS (2)
  1. BOSENTAN. [Suspect]
     Active Substance: BOSENTAN
     Indication: PULMONARY ARTERIAL HYPERTENSION
     Dates: start: 20191121
  2. BOSENTAN. [Suspect]
     Active Substance: BOSENTAN
     Indication: CHRONIC RESPIRATORY DISEASE
     Dosage: 3.5 ML
     Dates: start: 20210202

REACTIONS (3)
  - Rhinovirus infection [Unknown]
  - Hypoacusis [Unknown]
  - Visual impairment [Unknown]

NARRATIVE: CASE EVENT DATE: 20210325
